FAERS Safety Report 4687386-8 (Version None)
Quarter: 2005Q2

REPORT INFORMATION
  Report Type: 
  Country: None (occurrence: None)
  Receive Date: 20050609
  Receipt Date: 20050531
  Transmission Date: 20051028
  Serious: Yes (Other)
  Sender: FDA-Public Use
  Company Number: S05-USA-02815-01

PATIENT
  Age: 21 Year
  Sex: Male

DRUGS (3)
  1. CAMPRAL [Suspect]
     Indication: ABSTAINS FROM ALCOHOL
     Dosage: 666 MG TID PO
     Route: 048
     Dates: start: 20050430
  2. INSULIN [Concomitant]
  3. BOTOX (BOTULINUM TYPE A) [Concomitant]

REACTIONS (6)
  - ALCOHOL USE [None]
  - ASPARTATE AMINOTRANSFERASE INCREASED [None]
  - BLOOD CREATINE INCREASED [None]
  - BLOOD GLUCOSE INCREASED [None]
  - INFECTION [None]
  - SINUSITIS [None]
